FAERS Safety Report 14424536 (Version 1)
Quarter: 2018Q1

REPORT INFORMATION
  Report Type: Spontaneous
  Country: DE (occurrence: DE)
  Receive Date: 20180123
  Receipt Date: 20180123
  Transmission Date: 20180509
  Serious: Yes (Hospitalization)
  Sender: FDA-Public Use
  Company Number: DE-TEVA-2018-DE-848220

PATIENT
  Age: 14 Year
  Sex: Male

DRUGS (1)
  1. MCP RETARD 30MG [Suspect]
     Active Substance: METOCLOPRAMIDE
     Indication: GASTROENTERITIS
     Route: 048
     Dates: start: 20171206

REACTIONS (2)
  - Muscle spasticity [Not Recovered/Not Resolved]
  - Muscle contractions involuntary [Not Recovered/Not Resolved]

NARRATIVE: CASE EVENT DATE: 20171206
